FAERS Safety Report 17909314 (Version 1)
Quarter: 2020Q2

REPORT INFORMATION
  Report Type: Spontaneous
  Country: US (occurrence: US)
  Receive Date: 20200618
  Receipt Date: 20200618
  Transmission Date: 20200714
  Serious: Yes (Other)
  Sender: FDA-Public Use
  Company Number: US-ADVANZ PHARMA-202006006171

PATIENT

DRUGS (1)
  1. DIGOXIN. [Suspect]
     Active Substance: DIGOXIN
     Dosage: UNK, INJECTION
     Route: 037

REACTIONS (4)
  - Mental status changes [Recovered/Resolved]
  - Unresponsive to stimuli [Recovering/Resolving]
  - Generalised tonic-clonic seizure [Recovered/Resolved]
  - Wrong product administered [Unknown]
